FAERS Safety Report 11129491 (Version 1)
Quarter: 2015Q2

REPORT INFORMATION
  Report Type: Spontaneous
  Country: US (occurrence: US)
  Receive Date: 20150521
  Receipt Date: 20150521
  Transmission Date: 20150821
  Serious: Yes (Other)
  Sender: FDA-Public Use
  Company Number: US-GLENMARK GENERICS (EUROPE) LTD-2015GMK017021

PATIENT
  Age: 67 Year
  Sex: Female

DRUGS (8)
  1. ENTACAPONE. [Suspect]
     Active Substance: ENTACAPONE
     Indication: PARKINSON^S DISEASE
     Dosage: 1200 MG, QD
  2. MIRTAZAPINE. [Suspect]
     Active Substance: MIRTAZAPINE
     Indication: PARKINSON^S DISEASE
     Dosage: 30 MG, QD
  3. LEVODOPA [Suspect]
     Active Substance: LEVODOPA
     Indication: PARKINSON^S DISEASE
     Dosage: 600 MG, QD
  4. SELEGILINE HYDROCHLORIDE. [Suspect]
     Active Substance: SELEGILINE HYDROCHLORIDE
     Indication: PRODUCT USED FOR UNKNOWN INDICATION
     Dosage: 10 MG, QD
  5. PRAMIPEXOLE [Suspect]
     Active Substance: PRAMIPEXOLE
     Indication: PARKINSON^S DISEASE
     Dosage: 5 MG, QD, MAINTENANCE DOSAGE
  6. PRAMIPEXOLE [Suspect]
     Active Substance: PRAMIPEXOLE
     Dosage: 4 MG, QD
  7. PRAMIPEXOLE [Suspect]
     Active Substance: PRAMIPEXOLE
     Dosage: 0.5 MG, QD
  8. LEVODOPA [Suspect]
     Active Substance: LEVODOPA
     Dosage: 950 MG, QD

REACTIONS (18)
  - Bradykinesia [Unknown]
  - Pain [Unknown]
  - Hallucination, visual [Unknown]
  - Malaise [Unknown]
  - Dysphoria [Unknown]
  - Overdose [Unknown]
  - Stereotypy [Unknown]
  - Chorea [Unknown]
  - Resting tremor [Unknown]
  - Muscle rigidity [Unknown]
  - Drug effect decreased [Unknown]
  - Drug withdrawal syndrome [Unknown]
  - Panic disorder with agoraphobia [Recovered/Resolved]
  - Dyskinesia [Unknown]
  - Self-medication [Unknown]
  - Impulse-control disorder [Not Recovered/Not Resolved]
  - Drug ineffective [Unknown]
  - Anxiety [Unknown]
